FAERS Safety Report 9919846 (Version 1)
Quarter: 2014Q1

REPORT INFORMATION
  Report Type: Spontaneous
  Country: US (occurrence: US)
  Receive Date: 20140224
  Receipt Date: 20140224
  Transmission Date: 20141002
  Serious: Yes (Other)
  Sender: FDA-Public Use
  Company Number: US-PFIZER INC-2014050785

PATIENT
  Sex: Male
  Weight: 126.98 kg

DRUGS (4)
  1. DILANTIN-125 [Suspect]
     Indication: CONVULSION
     Dosage: 100 MG TWO TIMES DURING DAY AND 30 MG AT NIGHT,3X/DAY
  2. DILANTIN-125 [Suspect]
     Indication: LOSS OF CONSCIOUSNESS
  3. KEPPRA [Concomitant]
     Dosage: 1500 MG, 2X/DAY
     Route: 048
  4. LAMICTAL [Concomitant]
     Dosage: 200MG IN DAY AND 300MG IN NIGHT,2X/DAY
     Route: 048

REACTIONS (2)
  - Convulsion [Unknown]
  - Drug ineffective [Unknown]
